FAERS Safety Report 8924637 (Version 1)
Quarter: 2012Q4

REPORT INFORMATION
  Report Type: 
  Country: US (occurrence: US)
  Receive Date: 20121126
  Receipt Date: 20121126
  Transmission Date: 20130627
  Serious: No
  Sender: FDA-Public Use
  Company Number: US-BRISTOL-MYERS SQUIBB COMPANY-16978439

PATIENT
  Age: 48 Year
  Sex: Female

DRUGS (3)
  1. KOMBIGLYZE XR [Suspect]
     Dosage: 1DF=5/1000mg
     Dates: start: 2010
  2. PLAVIX [Concomitant]
  3. LIPITOR [Concomitant]

REACTIONS (5)
  - Diarrhoea [Unknown]
  - Vomiting [Unknown]
  - Dehydration [Unknown]
  - Dyspnoea [Unknown]
  - Chest pain [Unknown]
